FAERS Safety Report 18197872 (Version 3)
Quarter: 2022Q3

REPORT INFORMATION
  Report Type: Report from Study
  Country: FR (occurrence: None)
  Receive Date: 20200826
  Receipt Date: 20220825
  Transmission Date: 20221027
  Serious: Yes (Hospitalization)
  Sender: FDA-Public Use
  Company Number: FR-ROCHE-2664175

PATIENT
  Age: 70 Year
  Sex: Male
  Weight: 83 kg

DRUGS (7)
  1. ATEZOLIZUMAB [Suspect]
     Active Substance: ATEZOLIZUMAB
     Indication: Lymphoma
     Dosage: ON 07/APR/2020, LAST DOSE OF ATEZOLIZUMAB ADMINISTRATION BEFORE SAE.?ON DAY 2 OF EACH 21-DAY CYCLE D
     Route: 041
     Dates: start: 20200317, end: 20200427
  2. OBINUTUZUMAB [Suspect]
     Active Substance: OBINUTUZUMAB
     Indication: Lymphoma
     Dosage: ON 06/APR.2020, LAST DOSE OF OBINUTUZUMAB ADMINISTRATION BEFORE SAE. ?ON DAY 1, DAY 8 AND DAY 15 OF
     Route: 042
     Dates: start: 20200316, end: 20200427
  3. VENETOCLAX [Suspect]
     Active Substance: VENETOCLAX
     Indication: Lymphoma
     Dosage: ON 20/APR/2020, LAST DOSE OF VENETOCLAX ADMINISTRATION BEFORE SAE.
     Route: 065
     Dates: start: 20200323, end: 20200427
  4. BACTRIM [Concomitant]
     Active Substance: SULFAMETHOXAZOLE\TRIMETHOPRIM
  5. SALICYLIC ACID [Concomitant]
     Active Substance: SALICYLIC ACID
  6. ALLOPURINOL [Concomitant]
     Active Substance: ALLOPURINOL
  7. PANTOPRAZOLE [Concomitant]
     Active Substance: PANTOPRAZOLE

REACTIONS (1)
  - Chlamydial infection [Recovered/Resolved with Sequelae]

NARRATIVE: CASE EVENT DATE: 20200421
